FAERS Safety Report 6750378-9 (Version None)
Quarter: 2010Q2

REPORT INFORMATION
  Report Type: 
  Country: None (occurrence: None)
  Receive Date: 20100527
  Receipt Date: 20100520
  Transmission Date: 20101027
  Serious: Yes (Hospitalization)
  Sender: FDA-Public Use
  Company Number: 012299

PATIENT
  Sex: Female
  Weight: 87 kg

DRUGS (1)
  1. CIMZIA [Suspect]
     Indication: CROHN'S DISEASE
     Dosage: SUBCUTANEOUS
     Route: 058

REACTIONS (4)
  - ABDOMINAL PAIN [None]
  - CHILLS [None]
  - PELVIC ABSCESS [None]
  - PELVIC FLUID COLLECTION [None]
